FAERS Safety Report 7811859-X (Version None)
Quarter: 2011Q4

REPORT INFORMATION
  Report Type: 
  Country: None (occurrence: None)
  Receive Date: 20111013
  Receipt Date: 20110927
  Transmission Date: 20120403
  Serious: Yes (Hospitalization, Other)
  Sender: FDA-Public Use
  Company Number: PL-BAYER-2011-092327

PATIENT
  Age: 71 Year
  Sex: Male
  Weight: 105 kg

DRUGS (13)
  1. POLOCARD [Concomitant]
     Indication: MYOCARDIAL ISCHAEMIA
     Dosage: 75 MG, UNK
     Route: 048
     Dates: start: 20060101
  2. CRESTOR [Concomitant]
     Indication: PROPHYLAXIS
     Dosage: 5 MG, QD
     Route: 048
     Dates: start: 20060101
  3. PENTOHEXAL [Concomitant]
     Indication: PERIPHERAL ISCHAEMIA
     Dosage: 1 DF, QD
     Route: 048
     Dates: start: 20060101
  4. VESSEL DUE [Concomitant]
     Indication: PERIPHERAL ISCHAEMIA
     Dosage: 1 DF, QD
     Route: 048
     Dates: start: 20060101
  5. INSULIN HM MIXTARD [Concomitant]
     Indication: DIABETES MELLITUS
     Dosage: UNK UNK, PRN
     Route: 058
     Dates: start: 20060101
  6. SORAFENIB (RAF KINASE INHIBITOR) [Suspect]
     Dosage: 400 MG, QOD
     Route: 048
     Dates: start: 20110426, end: 20110915
  7. MILURIT [Concomitant]
     Indication: PROPHYLAXIS
     Dosage: 100 MG, QD
     Route: 048
     Dates: start: 20060101
  8. FUROSEMIDE [Concomitant]
     Indication: MYOCARDIAL ISCHAEMIA
     Dosage: 40 MG, QD
     Route: 048
     Dates: start: 20060101
  9. MEMOTROPIL [Concomitant]
     Indication: PROPHYLAXIS
     Dosage: 1.2 G, QD
     Route: 048
     Dates: start: 20060101
  10. BISOPROLOL FUMARATE [Concomitant]
     Indication: MYOCARDIAL ISCHAEMIA
     Dosage: 5 MG, QD
     Route: 048
     Dates: start: 20060101
  11. DOXANORM [Concomitant]
     Indication: MYOCARDIAL ISCHAEMIA
     Dosage: 4 MG, QD
     Route: 048
     Dates: start: 20060101
  12. DOXANORM [Concomitant]
     Indication: HYPERTENSION
  13. DIUVER [Concomitant]
     Indication: HYPERTENSION
     Dosage: 5 MG, QD
     Route: 048
     Dates: start: 20060101

REACTIONS (1)
  - FEMORAL ARTERY OCCLUSION [None]
